FAERS Safety Report 8538500-5 (Version None)
Quarter: 2012Q3

REPORT INFORMATION
  Report Type: 
  Country: None (occurrence: None)
  Receive Date: 20120718
  Receipt Date: 20120718
  Transmission Date: 20120928
  Serious: Yes (Other)
  Sender: FDA-Public Use
  Company Number: None

PATIENT
  Age: 79 Year
  Sex: Female
  Weight: 106.5953 kg

DRUGS (1)
  1. BRILINTA [Suspect]
     Indication: CARDIAC DISORDER
     Dosage: 90 MG 1 TAB EVERY 12 HRS
     Dates: start: 20120329, end: 20120509

REACTIONS (2)
  - DYSPNOEA [None]
  - ASTHENIA [None]
